FAERS Safety Report 7061672-9 (Version None)
Quarter: 2010Q4

REPORT INFORMATION
  Report Type: 
  Country: None (occurrence: None)
  Receive Date: 20101026
  Receipt Date: 20101018
  Transmission Date: 20110411
  Serious: Yes (Other)
  Sender: FDA-Public Use
  Company Number: PH-ELI_LILLY_AND_COMPANY-PH201010004679

PATIENT
  Sex: Male
  Weight: 73.016 kg

DRUGS (3)
  1. EFFIENT [Suspect]
     Indication: CORONARY ARTERY DISEASE
     Dosage: 10 MG, DAILY (1/D)
     Route: 048
     Dates: start: 20100602, end: 20101009
  2. ASPIRIN [Concomitant]
     Indication: ANTIPLATELET THERAPY
     Dosage: 80 MG, DAILY (1/D)
     Route: 048
  3. HUMULIN N [Concomitant]
     Indication: DIABETES MELLITUS
     Dosage: 46 U, DAILY (1/D)
     Route: 058

REACTIONS (2)
  - CYST [None]
  - PITUITARY HAEMORRHAGE [None]
